FAERS Safety Report 7513589-0 (Version None)
Quarter: 2011Q2

REPORT INFORMATION
  Report Type: 
  Country: None (occurrence: None)
  Receive Date: 20110520
  Receipt Date: 20110512
  Transmission Date: 20111010
  Serious: Yes (Hospitalization, Other)
  Sender: FDA-Public Use
  Company Number: AXC-2011-000220

PATIENT
  Age: 24 Year
  Sex: Female

DRUGS (2)
  1. MESALAMINE [Suspect]
     Indication: COLITIS ULCERATIVE
     Dosage: TOPICAL
     Route: 061
  2. MESALAMINE [Suspect]
     Indication: COLITIS ULCERATIVE
     Dosage: ORAL
     Route: 048

REACTIONS (9)
  - RASH PUSTULAR [None]
  - BIOPSY SKIN ABNORMAL [None]
  - MALAISE [None]
  - HYPONATRAEMIA [None]
  - PYREXIA [None]
  - HYPOKALAEMIA [None]
  - HEART RATE INCREASED [None]
  - COUGH [None]
  - ACUTE FEBRILE NEUTROPHILIC DERMATOSIS [None]
